FAERS Safety Report 20595617 (Version 1)
Quarter: 2022Q1

REPORT INFORMATION
  Report Type: Spontaneous
  Country: US (occurrence: US)
  Receive Date: 20220315
  Receipt Date: 20220315
  Transmission Date: 20220424
  Serious: Yes (Hospitalization, Other)
  Sender: FDA-Public Use
  Company Number: US-GSKCCFUS-Case-01319639_AE-76778

PATIENT
  Age: 75 Year
  Sex: Female

DRUGS (1)
  1. SOTROVIMAB [Suspect]
     Active Substance: SOTROVIMAB
     Indication: SARS-CoV-2 test positive
     Dosage: 62.5 MG/ML
     Route: 042
     Dates: start: 20220204

REACTIONS (11)
  - Urticaria [Recovered/Resolved]
  - Headache [Recovered/Resolved]
  - Pancreatitis [Recovered/Resolved]
  - Liver injury [Not Recovered/Not Resolved]
  - Nausea [Recovered/Resolved]
  - Liver function test abnormal [Not Recovered/Not Resolved]
  - Jaundice [Unknown]
  - Hypokalaemia [Recovered/Resolved]
  - Dehydration [Unknown]
  - Pain [Recovered/Resolved]
  - Off label use [Unknown]

NARRATIVE: CASE EVENT DATE: 20220209
